FAERS Safety Report 8461965-4 (Version None)
Quarter: 2012Q2

REPORT INFORMATION
  Report Type: 
  Country: None (occurrence: None)
  Receive Date: 20120625
  Receipt Date: 20120618
  Transmission Date: 20120825
  Serious: Yes (Hospitalization)
  Sender: FDA-Public Use
  Company Number: US-BAYER-2011-112037

PATIENT
  Age: 36 Year
  Sex: Female
  Weight: 59.864 kg

DRUGS (14)
  1. YAZ [Suspect]
     Indication: PREMENSTRUAL SYNDROME
     Dosage: UNK
     Dates: start: 20080501, end: 20100510
  2. JUICE PLUS [Concomitant]
     Dosage: UNK
     Dates: start: 20100501
  3. CARAFATE [Concomitant]
     Dosage: UNK
     Dates: start: 20100401
  4. NEXIUM [Concomitant]
     Dosage: UNK
     Dates: start: 20100401
  5. YAZ [Suspect]
     Indication: MENORRHAGIA
  6. XYZAL [Concomitant]
     Indication: MULTIPLE ALLERGIES
     Dosage: 5 MG, QD
     Dates: start: 20100501
  7. IBUPROFEN (ADVIL) [Concomitant]
     Indication: BACK PAIN
  8. CALCIUM [Concomitant]
     Dosage: UNK
     Dates: start: 20100401
  9. ALLEGRA [Concomitant]
  10. MAGNESIUM ASPARTATE [Concomitant]
     Dosage: UNK
     Dates: start: 20100401
  11. ACETAMINOPHEN [Concomitant]
     Indication: BACK PAIN
  12. IBUPROFEN (ADVIL) [Concomitant]
     Indication: ABDOMINAL PAIN UPPER
     Dosage: UNK UNK, TID
     Dates: start: 20100301, end: 20100501
  13. ACETAMINOPHEN [Concomitant]
     Indication: ABDOMINAL PAIN UPPER
     Dosage: UNK UNK, TID
     Dates: start: 20100301, end: 20100501
  14. XOPENEX [Concomitant]
     Dosage: 1-2 PUFFS AS NEEDED

REACTIONS (11)
  - BILIARY COLIC [None]
  - CHEST DISCOMFORT [None]
  - EMOTIONAL DISTRESS [None]
  - EPIGASTRIC DISCOMFORT [None]
  - GENERAL PHYSICAL HEALTH DETERIORATION [None]
  - ANXIETY [None]
  - BILIARY DYSKINESIA [None]
  - ABDOMINAL DISCOMFORT [None]
  - PAIN [None]
  - ABDOMINAL PAIN UPPER [None]
  - NAUSEA [None]
